FAERS Safety Report 9928908 (Version 2)
Quarter: 2014Q3

REPORT INFORMATION
  Report Type: Spontaneous
  Country: IT (occurrence: IT)
  Receive Date: 20140227
  Receipt Date: 20140702
  Transmission Date: 20150326
  Serious: Yes (Hospitalization)
  Sender: FDA-Public Use
  Company Number: IT-PFIZER INC-2014053527

PATIENT
  Age: 78 Year
  Sex: Female

DRUGS (7)
  1. DUROGESIC [Concomitant]
     Active Substance: FENTANYL
  2. EUTIROX [Concomitant]
     Active Substance: LEVOTHYROXINE SODIUM
     Dosage: 100 UG, UNK
  3. MIRTAZAPINE. [Concomitant]
     Active Substance: MIRTAZAPINE
     Dosage: 30 MG, UNK
  4. TENORMIN [Concomitant]
     Active Substance: ATENOLOL
  5. NORVASC [Concomitant]
     Active Substance: AMLODIPINE BESYLATE
  6. LYRICA [Suspect]
     Active Substance: PREGABALIN
     Dosage: 2 DF, DAILY
     Route: 048
     Dates: start: 20140209, end: 20140218
  7. PARIET [Concomitant]
     Active Substance: RABEPRAZOLE SODIUM

REACTIONS (2)
  - Balance disorder [Recovering/Resolving]
  - Head discomfort [Recovering/Resolving]

NARRATIVE: CASE EVENT DATE: 20140210
